FAERS Safety Report 15404560 (Version 1)
Quarter: 2018Q3

REPORT INFORMATION
  Report Type: Spontaneous
  Country: CA (occurrence: CA)
  Receive Date: 20180919
  Receipt Date: 20180919
  Transmission Date: 20181010
  Serious: Yes (Other)
  Sender: FDA-Public Use
  Company Number: CA-ANIPHARMA-2018-CA-000857

PATIENT
  Age: 69 Year
  Sex: Female

DRUGS (6)
  1. IBRANCE [Concomitant]
     Active Substance: PALBOCICLIB
     Dosage: 125 MG MONTH
     Route: 065
     Dates: start: 20180706
  2. LETROZOLE. [Concomitant]
     Active Substance: LETROZOLE
     Dosage: UNK
     Route: 065
  3. CALCIUM): [Concomitant]
     Dosage: EVERY 4 WEEKS
     Route: 065
  4. ANASTROZOLE. [Suspect]
     Active Substance: ANASTROZOLE
     Indication: BREAST CANCER METASTATIC
     Dosage: UNK
     Route: 048
     Dates: start: 201407
  5. ZOLEDRONIC ACID [Concomitant]
     Active Substance: ZOLEDRONIC ACID
     Dosage: EVERY 4 WEEKS
     Route: 065
  6. VITAMINS NOS [Concomitant]
     Active Substance: VITAMINS
     Dosage: EVERY 4 WEEKS
     Route: 065

REACTIONS (6)
  - Jugular vein thrombosis [Unknown]
  - Weight increased [Unknown]
  - Papilloedema [Unknown]
  - Subclavian vein thrombosis [Unknown]
  - Skin reaction [Unknown]
  - Malignant neoplasm progression [Unknown]

NARRATIVE: CASE EVENT DATE: 20150504
